FAERS Safety Report 10696677 (Version 1)
Quarter: 2015Q1

REPORT INFORMATION
  Report Type: Spontaneous
  Country: GB (occurrence: GB)
  Receive Date: 20150107
  Receipt Date: 20150107
  Transmission Date: 20150721
  Serious: Yes (Other)
  Sender: FDA-Public Use
  Company Number: PHHY2014GB170584

PATIENT
  Age: 17 Year
  Sex: Female

DRUGS (12)
  1. ZYPREXA [Suspect]
     Active Substance: OLANZAPINE
     Indication: LEARNING DISABILITY
     Route: 030
     Dates: start: 20141215
  2. SERTRALINE [Concomitant]
     Active Substance: SERTRALINE HYDROCHLORIDE
     Indication: PRODUCT USED FOR UNKNOWN INDICATION
     Route: 065
  3. ZYPREXA [Suspect]
     Active Substance: OLANZAPINE
     Indication: POST-TRAUMATIC STRESS DISORDER
  4. ARIPIPRAZOLE. [Concomitant]
     Active Substance: ARIPIPRAZOLE
     Indication: PRODUCT USED FOR UNKNOWN INDICATION
     Route: 065
  5. OLANZAPINE. [Suspect]
     Active Substance: OLANZAPINE
     Dosage: 7.5 MG, QD
     Route: 048
     Dates: start: 20141216
  6. OLANZAPINE. [Suspect]
     Active Substance: OLANZAPINE
     Indication: LEARNING DISABILITY
     Dosage: 10 MG, QD
     Route: 048
     Dates: end: 20141203
  7. OLANZAPINE. [Suspect]
     Active Substance: OLANZAPINE
     Indication: ADJUSTMENT DISORDER
     Dosage: 5 MG, QD
     Route: 048
     Dates: start: 20141215
  8. OLANZAPINE. [Suspect]
     Active Substance: OLANZAPINE
     Dosage: 2.5 MG, TID
     Route: 048
     Dates: start: 20141218
  9. ZYPREXA [Suspect]
     Active Substance: OLANZAPINE
     Indication: ADJUSTMENT DISORDER
  10. CIRCADIN [Concomitant]
     Active Substance: MELATONIN
     Indication: PRODUCT USED FOR UNKNOWN INDICATION
     Route: 065
  11. DIAZEPAM. [Concomitant]
     Active Substance: DIAZEPAM
     Indication: PRODUCT USED FOR UNKNOWN INDICATION
     Dosage: 2 MG, TID
     Route: 065
  12. OLANZAPINE. [Suspect]
     Active Substance: OLANZAPINE
     Indication: POST-TRAUMATIC STRESS DISORDER
     Dosage: 2.5 MG, QD
     Route: 048
     Dates: start: 20141214

REACTIONS (4)
  - Cardiac disorder [Not Recovered/Not Resolved]
  - Electrocardiogram QT prolonged [Not Recovered/Not Resolved]
  - Weight increased [Not Recovered/Not Resolved]
  - Off label use [Not Recovered/Not Resolved]
